FAERS Safety Report 16881786 (Version 3)
Quarter: 2019Q4

REPORT INFORMATION
  Report Type: Report from Study
  Country: None (occurrence: GB)
  Receive Date: 20191003
  Receipt Date: 20191028
  Transmission Date: 20200122
  Serious: Yes (Hospitalization, Other)
  Sender: FDA-Public Use
  Company Number: GB-ABBVIE-19P-167-2947152-00

PATIENT
  Age: 15 Year
  Sex: Male
  Weight: 49.4 kg

DRUGS (26)
  1. OMEPRAZOLE. [Concomitant]
     Active Substance: OMEPRAZOLE
     Route: 048
     Dates: start: 20190718
  2. OLOPATADINE. [Concomitant]
     Active Substance: OLOPATADINE
     Indication: OCULAR HYPERAEMIA
  3. CETIRIZINE [Concomitant]
     Active Substance: CETIRIZINE HYDROCHLORIDE
     Route: 048
     Dates: start: 20190312, end: 20190624
  4. FUSCIDIC ACID [Concomitant]
     Indication: EYE PAIN
     Route: 047
     Dates: start: 20180111
  5. PREDNISOLONE. [Concomitant]
     Active Substance: PREDNISOLONE
     Indication: CROHN^S DISEASE
     Route: 048
     Dates: start: 20181013
  6. HUMIRA [Suspect]
     Active Substance: ADALIMUMAB
     Indication: CROHN^S DISEASE
     Route: 058
     Dates: start: 20140901, end: 20171020
  7. BETNESOL [Concomitant]
     Indication: OCULAR HYPERAEMIA
  8. DAKTACORT [Concomitant]
     Active Substance: HYDROCORTISONE\MICONAZOLE NITRATE
     Indication: EAR PAIN
     Dosage: APPLY TO AFFECTED AREA
     Route: 061
     Dates: start: 20171130
  9. HUMIRA [Suspect]
     Active Substance: ADALIMUMAB
     Route: 058
     Dates: start: 20171020, end: 20171203
  10. HUMIRA [Suspect]
     Active Substance: ADALIMUMAB
     Route: 058
     Dates: start: 20190718
  11. OMEPRAZOLE. [Concomitant]
     Active Substance: OMEPRAZOLE
     Indication: CROHN^S DISEASE
     Route: 048
     Dates: start: 20100816, end: 20190624
  12. BETNESOL [Concomitant]
     Indication: EYE INFLAMMATION
     Route: 047
     Dates: start: 20180111
  13. HYDROCORTISONE. [Concomitant]
     Active Substance: HYDROCORTISONE
     Indication: ECZEMA
     Route: 061
     Dates: start: 20180111
  14. HUMIRA [Suspect]
     Active Substance: ADALIMUMAB
     Route: 058
     Dates: start: 20181023, end: 20190617
  15. DAKTACORT [Concomitant]
     Active Substance: HYDROCORTISONE\MICONAZOLE NITRATE
     Indication: EXTERNAL EAR INFLAMMATION
  16. AZATHIOPRINE. [Suspect]
     Active Substance: AZATHIOPRINE
     Route: 048
     Dates: start: 20190718
  17. CETIRIZINE [Concomitant]
     Active Substance: CETIRIZINE HYDROCHLORIDE
     Route: 048
     Dates: start: 20190701
  18. DIPROBASE [Concomitant]
     Active Substance: CHLOROCRESOL
     Indication: DRY SKIN
     Dosage: DOSE: APPLY TO AFFECTED SKIN
     Route: 061
     Dates: start: 20171227
  19. HUMIRA [Suspect]
     Active Substance: ADALIMUMAB
     Route: 058
     Dates: start: 20171204, end: 20181022
  20. AZATHIOPRINE. [Suspect]
     Active Substance: AZATHIOPRINE
     Indication: CROHN^S DISEASE
     Route: 048
     Dates: start: 20161123, end: 20190624
  21. OLOPATADINE. [Concomitant]
     Active Substance: OLOPATADINE
     Indication: EYE SWELLING
     Dosage: DOSE: 1 MG/ML GTT
     Route: 047
     Dates: start: 201711
  22. FUSCIDIC ACID [Concomitant]
     Indication: EYE INFLAMMATION
  23. CETIRIZINE [Concomitant]
     Active Substance: CETIRIZINE HYDROCHLORIDE
     Indication: SEASONAL ALLERGY
     Route: 048
     Dates: start: 20170523, end: 20180311
  24. HYLO TEAR [Concomitant]
     Indication: DRY EYE
     Route: 047
     Dates: start: 20171222
  25. ACICLOVIR [Concomitant]
     Active Substance: ACYCLOVIR
     Indication: ORAL HERPES
     Route: 061
     Dates: start: 20180928
  26. DAKTACORT [Concomitant]
     Active Substance: HYDROCORTISONE\MICONAZOLE NITRATE
     Indication: OTORRHOEA

REACTIONS (1)
  - Ileal stenosis [Recovered/Resolved]

NARRATIVE: CASE EVENT DATE: 20190625
